FAERS Safety Report 24879173 (Version 1)
Quarter: 2025Q1

REPORT INFORMATION
  Report Type: Spontaneous
  Country: US (occurrence: None)
  Receive Date: 20250123
  Receipt Date: 20250123
  Transmission Date: 20250409
  Serious: Yes (Death)
  Sender: FDA-CTU
  Company Number: None

PATIENT
  Age: 92 Year
  Sex: Male

DRUGS (1)
  1. OCTREOTIDE [Suspect]
     Active Substance: OCTREOTIDE
     Indication: Gastrointestinal angiodysplasia
     Dosage: FREQUENCY : TWICE A DAY;?
     Route: 042
     Dates: start: 202409

REACTIONS (1)
  - Organ failure [None]

NARRATIVE: CASE EVENT DATE: 20250119
